FAERS Safety Report 13836037 (Version 1)
Quarter: 2017Q3

REPORT INFORMATION
  Report Type: Spontaneous
  Country: KR (occurrence: KR)
  Receive Date: 20170804
  Receipt Date: 20170804
  Transmission Date: 20171127
  Serious: Yes (Other)
  Sender: FDA-Public Use
  Company Number: KR-ELI_LILLY_AND_COMPANY-KR201708001572

PATIENT
  Age: 57 Year
  Sex: Female

DRUGS (3)
  1. IRINOTECAN [Suspect]
     Active Substance: IRINOTECAN
     Indication: COLON CANCER
     Dosage: 228 MG, UNKNOWN
     Route: 065
     Dates: start: 20160224
  2. ERBITUX [Suspect]
     Active Substance: CETUXIMAB
     Indication: COLON CANCER
     Dosage: 755 MG, UNKNOWN
     Route: 065
     Dates: start: 20160224
  3. FLUOROURACIL. [Suspect]
     Active Substance: FLUOROURACIL
     Indication: COLON CANCER
     Dosage: 3288 MG, UNKNOWN
     Route: 065
     Dates: start: 20160224

REACTIONS (5)
  - Decreased appetite [Unknown]
  - Stomatitis [Unknown]
  - Neutropenia [Recovering/Resolving]
  - Visual impairment [Unknown]
  - Fatigue [Unknown]

NARRATIVE: CASE EVENT DATE: 20160416
